FAERS Safety Report 7334107-6 (Version None)
Quarter: 2011Q1

REPORT INFORMATION
  Report Type: 
  Country: None (occurrence: None)
  Receive Date: 20110307
  Receipt Date: 20110225
  Transmission Date: 20110831
  Serious: Yes (Other)
  Sender: FDA-Public Use
  Company Number: US-AMGEN-USASP2011011039

PATIENT
  Age: 51 Year
  Sex: Female

DRUGS (1)
  1. ENBREL [Suspect]
     Indication: RHEUMATOID ARTHRITIS
     Dates: start: 20060101

REACTIONS (6)
  - DEVICE RELATED INFECTION [None]
  - INJECTION SITE HAEMATOMA [None]
  - LABILE HYPERTENSION [None]
  - INJECTION SITE PAIN [None]
  - DENTAL PROSTHESIS USER [None]
  - ORAL PAIN [None]
